FAERS Safety Report 11563501 (Version 1)
Quarter: 2015Q3

REPORT INFORMATION
  Report Type: Spontaneous
  Country: US (occurrence: US)
  Receive Date: 20150916
  Receipt Date: 20150916
  Transmission Date: 20151125
  Serious: No
  Sender: FDA-Public Use
  Company Number: US-ELI_LILLY_AND_COMPANY-US200902000447

PATIENT
  Sex: Female

DRUGS (2)
  1. FORTEO [Suspect]
     Active Substance: TERIPARATIDE
     Dosage: UNK, UNK
  2. COREG [Concomitant]
     Active Substance: CARVEDILOL

REACTIONS (3)
  - Hearing impaired [Unknown]
  - Oxygen supplementation [Unknown]
  - Somnolence [Unknown]
